FAERS Safety Report 19975220 (Version 2)
Quarter: 2021Q4

REPORT INFORMATION
  Report Type: Spontaneous
  Country: DE (occurrence: DE)
  Receive Date: 20211020
  Receipt Date: 20211116
  Transmission Date: 20220303
  Serious: Yes (Death, Hospitalization, Other)
  Sender: FDA-Public Use
  Company Number: DE-TEVA-2021-DE-1930097

PATIENT
  Age: 93 Year
  Sex: Female
  Weight: 42 kg

DRUGS (13)
  1. AMIODARONE [Suspect]
     Active Substance: AMIODARONE
     Indication: Product used for unknown indication
     Dosage: UNK
     Route: 065
     Dates: start: 20190802
  2. KETAMIN [Suspect]
     Active Substance: KETAMINE
     Indication: Anaesthesia
     Dosage: UNK
     Route: 065
  3. TRANEXAMIC ACID [Suspect]
     Active Substance: TRANEXAMIC ACID
     Indication: Product used for unknown indication
     Dosage: 1000 MILLIGRAM, QD
     Route: 042
     Dates: start: 20190802, end: 20190802
  4. ATROPINE [Suspect]
     Active Substance: ATROPINE
     Indication: Product used for unknown indication
     Dosage: UNK, 1 AMPOULE
     Dates: start: 20190802
  5. ADRENALIN [Suspect]
     Active Substance: EPINEPHRINE
     Indication: Product used for unknown indication
     Dosage: 10 MICROGRAM, TID
  6. PANTOZOL [Suspect]
     Active Substance: PANTOPRAZOLE SODIUM
     Indication: Product used for unknown indication
     Dosage: 80 MILLIGRAM, QD
     Route: 042
     Dates: start: 20190802
  7. NOREPINEPHRINE HYDROCHLORIDE, (+/-)- [Suspect]
     Active Substance: NOREPINEPHRINE HYDROCHLORIDE, (+/-)-
     Indication: Product used for unknown indication
     Dosage: UNK, TOGETHER WITH NACL 0.9 PERCENT
     Dates: start: 20190802
  8. MIDAZOLAM [Suspect]
     Active Substance: MIDAZOLAM
     Indication: Anaesthesia
     Dosage: UNK, QD, (TOGETHER WITH NACL 0.9 PERCENT)
     Dates: start: 20190802
  9. SULTAMICILLIN TOSYLATE [Suspect]
     Active Substance: SULTAMICILLIN TOSYLATE
     Indication: Product used for unknown indication
     Dosage: 6 GRAM, QD
     Route: 042
  10. SUPRARENIN [Suspect]
     Active Substance: EPINEPHRINE
     Indication: Product used for unknown indication
     Dosage: UNK, 4 AMPOULES
     Dates: start: 20190802
  11. SUFENTA [Suspect]
     Active Substance: SUFENTANIL CITRATE
     Indication: Product used for unknown indication
     Dosage: UNK, TOGETHER WITH NACL 0.9 PERCENT
     Dates: start: 20190802
  12. SODIUM BICARBONATE [Concomitant]
     Active Substance: SODIUM BICARBONATE
     Dosage: 400 MILLILITER, QD
  13. SODIUM CHLORIDE [Concomitant]
     Active Substance: SODIUM CHLORIDE
     Dosage: UNK

REACTIONS (18)
  - Toxicity to various agents [Fatal]
  - Dysphonia [Unknown]
  - Ischaemia [Unknown]
  - Abdominal distension [Unknown]
  - Coagulopathy [Unknown]
  - Cardiogenic shock [Unknown]
  - Acidosis [Unknown]
  - Haemorrhage [Unknown]
  - Acute respiratory failure [Unknown]
  - Anaemia [Unknown]
  - Gastrointestinal haemorrhage [Unknown]
  - Aspiration [Unknown]
  - Ventricular fibrillation [Unknown]
  - Myocardial infarction [Unknown]
  - Haematemesis [Unknown]
  - Bundle branch block right [Unknown]
  - Hepatic failure [Unknown]
  - Cardiac arrest [Recovered/Resolved]

NARRATIVE: CASE EVENT DATE: 20190802
